FAERS Safety Report 12598631 (Version 1)
Quarter: 2016Q3

REPORT INFORMATION
  Report Type: Spontaneous
  Country: NL (occurrence: NL)
  Receive Date: 20160727
  Receipt Date: 20160727
  Transmission Date: 20161109
  Serious: Yes (Life-Threatening, Other)
  Sender: FDA-Public Use
  Company Number: NL-GLAXOSMITHKLINE-NL2016GSK105867

PATIENT
  Age: 21 Year
  Sex: Female
  Weight: 73 kg

DRUGS (1)
  1. CLEMASTINE FUMARATE. [Suspect]
     Active Substance: CLEMASTINE FUMARATE
     Indication: HYPERSENSITIVITY
     Dosage: 2 MG, QD
     Dates: start: 20160709, end: 20160709

REACTIONS (1)
  - Ventricular tachycardia [Recovered/Resolved]

NARRATIVE: CASE EVENT DATE: 20160709
